FAERS Safety Report 17215939 (Version 2)
Quarter: 2020Q1

REPORT INFORMATION
  Report Type: Spontaneous
  Country: CH (occurrence: CH)
  Receive Date: 20191230
  Receipt Date: 20200102
  Transmission Date: 20200409
  Serious: Yes (Death)
  Sender: FDA-Public Use
  Company Number: CH-MYLANLABS-2019M1130237

PATIENT
  Age: 91 Year
  Sex: Female

DRUGS (4)
  1. TRIATEC                            /00885601/ [Concomitant]
     Active Substance: RAMIPRIL
     Indication: HYPERTENSION
     Dosage: LONG-TERM TREATMENT
     Route: 048
  2. LOPRESOR                           /00376902/ [Concomitant]
     Active Substance: METOPROLOL TARTRATE
     Indication: HYPERTENSION
     Dosage: UNK
  3. LEPONEX [Suspect]
     Active Substance: CLOZAPINE
     Indication: PRODUCT USED FOR UNKNOWN INDICATION
     Dosage: ADMINISTRATION OF A SINGLE TABLET, BY MISTAKE
     Route: 048
     Dates: start: 20191210, end: 20191210
  4. VITARUBIN                          /00091803/ [Concomitant]
     Dosage: 1 DOSAGE FORM (ONE VIAL)
     Route: 030
     Dates: start: 20191210

REACTIONS (8)
  - Cardiotoxicity [Fatal]
  - Hypotension [Fatal]
  - Acute respiratory failure [Fatal]
  - Product prescribing error [Fatal]
  - Incorrect dose administered [Fatal]
  - Cerebral ischaemia [Fatal]
  - Somnolence [Unknown]
  - Cardiac failure acute [Fatal]

NARRATIVE: CASE EVENT DATE: 20191210
